FAERS Safety Report 7212603-X (Version None)
Quarter: 2011Q1

REPORT INFORMATION
  Report Type: 
  Country: None (occurrence: None)
  Receive Date: 20110106
  Receipt Date: 20101227
  Transmission Date: 20110831
  Serious: Yes (Hospitalization)
  Sender: FDA-Public Use
  Company Number: FR-JNJFOC-20110100640

PATIENT
  Sex: Male

DRUGS (6)
  1. ZOLOFT [Concomitant]
  2. EXELON [Concomitant]
  3. ARTOTEC [Concomitant]
     Indication: ARTHRALGIA
  4. ACETAMINOPHEN AND TRAMADOL HCL [Suspect]
     Indication: PRODUCT USED FOR UNKNOWN INDICATION
     Route: 048
  5. MADOPAR [Concomitant]
  6. TOPALGIC [Suspect]
     Indication: ARTHRALGIA
     Route: 048

REACTIONS (1)
  - HYPOGLYCAEMIA [None]
